FAERS Safety Report 7983764-X (Version None)
Quarter: 2011Q4

REPORT INFORMATION
  Report Type: 
  Country: None (occurrence: None)
  Receive Date: 20111215
  Receipt Date: 20111207
  Transmission Date: 20120403
  Serious: Yes (Other)
  Sender: FDA-Public Use
  Company Number: US-US-EMD SERONO, INC.-7100767

PATIENT
  Sex: Female
  Weight: 104 kg

DRUGS (3)
  1. IBUPROFEN [Concomitant]
     Indication: ABDOMINAL PAIN
  2. REBIF [Suspect]
     Indication: PRODUCT USED FOR UNKNOWN INDICATION
     Route: 058
     Dates: start: 20110627
  3. MIRENA [Concomitant]
     Route: 015
     Dates: start: 20080101

REACTIONS (5)
  - INJECTION SITE PRURITUS [None]
  - INJECTION SITE HAEMATOMA [None]
  - INJECTION SITE URTICARIA [None]
  - HEPATIC STEATOSIS [None]
  - INJECTION SITE ERYTHEMA [None]
